FAERS Safety Report 7636927-7 (Version None)
Quarter: 2011Q3

REPORT INFORMATION
  Report Type: 
  Country: None (occurrence: None)
  Receive Date: 20110726
  Receipt Date: 20110620
  Transmission Date: 20111222
  Serious: No
  Sender: FDA-Public Use
  Company Number: US-BAYER-2011-054110

PATIENT
  Age: 11 Month
  Sex: Female
  Weight: 10 kg

DRUGS (2)
  1. ALEVE (CAPLET) [Suspect]
     Dosage: 1 DF, ONCE
     Route: 048
     Dates: start: 20110620
  2. PEDIALYTE [ELECTROLYTES NOS,GLUCOSE] [Concomitant]

REACTIONS (1)
  - NO ADVERSE EVENT [None]
